FAERS Safety Report 16359394 (Version 1)
Quarter: 2019Q2

REPORT INFORMATION
  Report Type: Spontaneous
  Country: US (occurrence: US)
  Receive Date: 20190528
  Receipt Date: 20190528
  Transmission Date: 20190711
  Serious: Yes (Other)
  Sender: FDA-Public Use
  Company Number: US-009507513-1905USA009008

PATIENT
  Age: 53 Year
  Sex: Male

DRUGS (2)
  1. FINASTERIDE. [Suspect]
     Active Substance: FINASTERIDE
     Indication: ANDROGENETIC ALOPECIA
     Dosage: UNK
     Route: 065
     Dates: start: 2005
  2. PROPECIA [Suspect]
     Active Substance: FINASTERIDE
     Dosage: UNK
     Route: 065
     Dates: start: 2005

REACTIONS (12)
  - Peyronie^s disease [Not Recovered/Not Resolved]
  - Depression [Not Recovered/Not Resolved]
  - Quality of life decreased [Not Recovered/Not Resolved]
  - Breast cancer [Not Recovered/Not Resolved]
  - Erectile dysfunction [Unknown]
  - Erectile dysfunction [Not Recovered/Not Resolved]
  - Prostate cancer [Not Recovered/Not Resolved]
  - Male sexual dysfunction [Not Recovered/Not Resolved]
  - Breast cancer male [Not Recovered/Not Resolved]
  - Cognitive disorder [Not Recovered/Not Resolved]
  - Gynaecomastia [Not Recovered/Not Resolved]
  - Off label use [Unknown]

NARRATIVE: CASE EVENT DATE: 2005
